FAERS Safety Report 4764101-0 (Version None)
Quarter: 2005Q3

REPORT INFORMATION
  Report Type: 
  Country: None (occurrence: None)
  Receive Date: 20050906
  Receipt Date: 20050824
  Transmission Date: 20060218
  Serious: Yes (Hospitalization)
  Sender: FDA-Public Use
  Company Number: 2005120277

PATIENT
  Age: 79 Year
  Sex: Male
  Weight: 81.1939 kg

DRUGS (1)
  1. DETROL LA [Suspect]
     Indication: POLLAKIURIA
     Dosage: 4 MG (4 MG, AS NECESSARY), ORAL  LATE 2004 OR EARLY 2005
     Route: 048

REACTIONS (4)
  - DRY MOUTH [None]
  - FALL [None]
  - INITIAL INSOMNIA [None]
  - SUBDURAL HAEMATOMA [None]
